FAERS Safety Report 16851153 (Version 1)
Quarter: 2019Q3

REPORT INFORMATION
  Report Type: Spontaneous
  Country: US (occurrence: US)
  Receive Date: 20190925
  Receipt Date: 20190925
  Transmission Date: 20191005
  Serious: Yes (Hospitalization, Other)
  Sender: FDA-Public Use
  Company Number: US-BAYER-2019-171993

PATIENT
  Age: 81 Year
  Sex: Male
  Weight: 80.73 kg

DRUGS (10)
  1. LECITHIN [Concomitant]
     Active Substance: LECITHIN
  2. SULFASALAZINE. [Concomitant]
     Active Substance: SULFASALAZINE
     Indication: LARGE INTESTINAL ULCER
     Dosage: 500 MG, BID
     Dates: start: 1992
  3. LUTEIN [XANTOFYL] [Concomitant]
     Dosage: 20 MG
  4. VITAMIN D3 [Concomitant]
     Active Substance: CHOLECALCIFEROL
  5. FISH OIL [Concomitant]
     Active Substance: FISH OIL
  6. GENUINE BAYER ASPIRIN [Suspect]
     Active Substance: ASPIRIN
     Dosage: 1 DF, QD
     Dates: start: 201905
  7. FAULDING OLIVE LEAF [Concomitant]
  8. PROBIOTICS NOS [Concomitant]
     Active Substance: PROBIOTICS NOS
  9. TURMERIC [CURCUMA LONGA] [Concomitant]
     Indication: NUTRITIONAL SUPPLEMENTATION
     Dosage: 800 MG, BID
     Route: 048
     Dates: start: 2014, end: 201905
  10. TURMERIC [CURCUMA LONGA] [Concomitant]
     Indication: NUTRITIONAL SUPPLEMENTATION
     Dosage: 500 MG, QD
     Route: 048
     Dates: start: 2014, end: 201905

REACTIONS (4)
  - Dizziness [Recovered/Resolved]
  - Haematochezia [Recovered/Resolved]
  - Dehydration [Recovered/Resolved]
  - Faeces discoloured [Recovered/Resolved]

NARRATIVE: CASE EVENT DATE: 201905
